FAERS Safety Report 13541437 (Version 6)
Quarter: 2017Q3

REPORT INFORMATION
  Report Type: Spontaneous
  Country: US (occurrence: US)
  Receive Date: 20170512
  Receipt Date: 20170818
  Transmission Date: 20171127
  Serious: Yes (Hospitalization, Other)
  Sender: FDA-Public Use
  Company Number: US-PFIZER INC-2017173635

PATIENT
  Age: 84 Year
  Sex: Female

DRUGS (10)
  1. IMODIUM [Concomitant]
     Active Substance: LOPERAMIDE HYDROCHLORIDE
     Dosage: UNK
  2. VALSARTAN. [Concomitant]
     Active Substance: VALSARTAN
     Dosage: UNK
  3. SUTENT [Suspect]
     Active Substance: SUNITINIB MALATE
     Indication: CARCINOID TUMOUR PULMONARY
     Dosage: 12.5 MG, DAILY
     Dates: start: 20170419, end: 20170509
  4. PRILOSEC [Concomitant]
     Active Substance: OMEPRAZOLE MAGNESIUM
     Dosage: UNK
     Dates: start: 2003
  5. SANDOSTATIN [Concomitant]
     Active Substance: OCTREOTIDE ACETATE
     Dosage: UNK
     Dates: start: 2016
  6. SUTENT [Suspect]
     Active Substance: SUNITINIB MALATE
     Dosage: 12.5 MG, ALTERNATE DAY (EVERY OTHER DAY)
     Dates: start: 20170523
  7. SUTENT [Suspect]
     Active Substance: SUNITINIB MALATE
     Dosage: 12.5 MG, WEEKLY
  8. SUTENT [Suspect]
     Active Substance: SUNITINIB MALATE
     Dosage: 12.5 MG, 2X/WEEK (MONDAY AND THURSDAY)
  9. AVAPRO [Concomitant]
     Active Substance: IRBESARTAN
     Dosage: UNK
  10. BENEFIBER [Concomitant]
     Active Substance: STARCH, WHEAT
     Dosage: UNK, AS NEEDED (PRN)
     Dates: start: 2016

REACTIONS (15)
  - Respiratory tract infection [Unknown]
  - Blood glucose decreased [Unknown]
  - Paranasal sinus hypersecretion [Unknown]
  - Burning sensation [Not Recovered/Not Resolved]
  - Product use in unapproved indication [Unknown]
  - Neuropathy peripheral [Unknown]
  - Diarrhoea [Unknown]
  - Dyspnoea [Unknown]
  - Hypertension [Not Recovered/Not Resolved]
  - Blood pressure systolic increased [Unknown]
  - Hypersensitivity [Unknown]
  - Peripheral swelling [Unknown]
  - Frequent bowel movements [Unknown]
  - Blood glucose increased [Unknown]
  - Abdominal pain lower [Unknown]

NARRATIVE: CASE EVENT DATE: 20170509
